FAERS Safety Report 8795291 (Version 1)
Quarter: 2012Q4

REPORT INFORMATION
  Report Type: Report from Study
  Country: JP (occurrence: JP)
  Receive Date: 20120917
  Receipt Date: 20120917
  Transmission Date: 20130627
  Serious: Yes (Hospitalization)
  Sender: FDA-Public Use
  Company Number: JP-MSD-1207JPN000549

PATIENT

DRUGS (7)
  1. VANIPREVIR [Suspect]
     Indication: HEPATITIS C
     Dosage: 2 DF, bid
     Route: 048
     Dates: start: 20111114, end: 20120429
  2. PEGINTRON [Suspect]
     Indication: HEPATITIS C
     Dosage: 80 Microgram, qw
     Route: 058
     Dates: start: 20111114, end: 20120423
  3. REBETOL [Suspect]
     Indication: HEPATITIS C
     Dosage: UNK UNK, bid
     Dates: start: 20111114, end: 20120429
  4. MAGLAX (MAGNESIUM OXIDE) [Concomitant]
     Indication: GASTRITIS PROPHYLAXIS
     Dosage: 330 mg, tid
     Route: 048
     Dates: start: 20110101
  5. BIO-THREE [Concomitant]
     Indication: CONSTIPATION
     Dosage: 200 mg, tid
     Route: 048
     Dates: start: 20110101, end: 20120709
  6. FOSAMAC TABLETS 35MG [Concomitant]
     Indication: OSTEOPOROSIS
     Dosage: 35 mg, qw
     Route: 048
     Dates: start: 20110101
  7. AZUNOL (SODIUM GUALENATE) [Concomitant]
     Indication: PROPHYLAXIS
     Dosage: UNK
     Dates: start: 20120501, end: 20120513

REACTIONS (1)
  - Diffuse large B-cell lymphoma [Not Recovered/Not Resolved]
